FAERS Safety Report 20226417 (Version 1)
Quarter: 2021Q4

REPORT INFORMATION
  Report Type: Spontaneous
  Country: ES (occurrence: ES)
  Receive Date: 20211224
  Receipt Date: 20211224
  Transmission Date: 20220303
  Serious: Yes (Life-Threatening, Hospitalization)
  Sender: FDA-Public Use
  Company Number: ES-PFIZER INC-202101787425

PATIENT
  Age: 75 Year
  Sex: Male

DRUGS (1)
  1. VANCOMYCIN HYDROCHLORIDE [Suspect]
     Active Substance: VANCOMYCIN HYDROCHLORIDE
     Indication: Skin ulcer
     Dosage: 10 ML (OF THE INFUSION)

REACTIONS (5)
  - Dialysis disequilibrium syndrome [Unknown]
  - Hypotension [Unknown]
  - Loss of consciousness [Unknown]
  - Dyspnoea [Unknown]
  - Cold sweat [Unknown]
